FAERS Safety Report 6371805-5 (Version None)
Quarter: 2009Q3

REPORT INFORMATION
  Report Type: 
  Country: None (occurrence: None)
  Receive Date: 20090923
  Receipt Date: 20090916
  Transmission Date: 20100115
  Serious: Yes (Other)
  Sender: FDA-Public Use
  Company Number: US-GENENTECH-279208

PATIENT
  Age: 18 Year
  Sex: Female

DRUGS (6)
  1. XOLAIR [Suspect]
     Indication: ASTHMA
     Dosage: 375 MG/M2, Q2W
     Route: 058
     Dates: start: 20090114
  2. ADVAIR HFA [Concomitant]
     Indication: ASTHMA
     Dosage: UNK
     Route: 055
     Dates: start: 20070406
  3. SINGULAIR [Concomitant]
     Indication: ASTHMA
     Dosage: 10 MG, QD
     Route: 048
     Dates: start: 20070406
  4. ALBUTEROL [Concomitant]
     Indication: ASTHMA
     Dosage: 90 A?G, PRN
     Route: 055
     Dates: start: 20070406
  5. PREDNISONE TAB [Concomitant]
     Indication: ASTHMA
     Dosage: 20 MG, UNK
     Route: 048
  6. PULMICORT [Concomitant]
     Indication: ASTHMA
     Dosage: 180 MG, BID
     Dates: start: 20090330

REACTIONS (2)
  - DRUG EXPOSURE DURING PREGNANCY [None]
  - PRE-ECLAMPSIA [None]
